FAERS Safety Report 14583909 (Version 2)
Quarter: 2018Q4

REPORT INFORMATION
  Report Type: Report from Study
  Country: FR (occurrence: FR)
  Receive Date: 20180228
  Receipt Date: 20181109
  Transmission Date: 20190204
  Serious: Yes (Hospitalization, Other)
  Sender: FDA-Public Use
  Company Number: FR-GLAXOSMITHKLINE-FR2018028699

PATIENT

DRUGS (8)
  1. HYDROCORTISONE. [Suspect]
     Active Substance: HYDROCORTISONE
     Indication: PRODUCT USED FOR UNKNOWN INDICATION
     Dosage: 20 MG, QD
     Route: 042
     Dates: start: 20160830, end: 20160917
  2. ACICLOVIR [Suspect]
     Active Substance: ACYCLOVIR
     Indication: ANTIVIRAL PROPHYLAXIS
     Dosage: 500 MG, QD
     Route: 042
  3. CICLOSPORIN [Suspect]
     Active Substance: CYCLOSPORINE
     Indication: PROPHYLAXIS AGAINST TRANSPLANT REJECTION
     Dosage: 80 MG,  QD
     Route: 042
     Dates: start: 20160828, end: 20170220
  4. VANCOMYCIN [Suspect]
     Active Substance: VANCOMYCIN
     Indication: ANTIBIOTIC PROPHYLAXIS
     Dosage: 1.7 G, QD
     Route: 042
     Dates: start: 20160824, end: 20160916
  5. DEFITELIO [Suspect]
     Active Substance: DEFIBROTIDE SODIUM
     Indication: PROPHYLAXIS
     Dosage: 680 MG, QD
     Route: 042
     Dates: start: 20160827, end: 20161010
  6. MORPHINE [Suspect]
     Active Substance: MORPHINE
     Indication: ANTIBIOTIC PROPHYLAXIS
     Dosage: 57.7 MG, QD
     Route: 042
     Dates: start: 20160904, end: 20160916
  7. ZOPHREN [Suspect]
     Active Substance: ONDANSETRON
     Indication: PROPHYLAXIS OF NAUSEA AND VOMITING
     Dosage: 8 MG, QD
     Route: 042
  8. TIENAM [Suspect]
     Active Substance: CILASTATIN SODIUM\IMIPENEM
     Indication: ANTIBIOTIC PROPHYLAXIS
     Dosage: 430 MG, QD
     Route: 042
     Dates: start: 20160904, end: 20160916

REACTIONS (2)
  - Thrombocytopenia [Recovered/Resolved]
  - Haemorrhage [Recovered/Resolved]

NARRATIVE: CASE EVENT DATE: 20160908
